FAERS Safety Report 4728753-3 (Version None)
Quarter: 2005Q3

REPORT INFORMATION
  Report Type: 
  Country: None (occurrence: None)
  Receive Date: 20050729
  Receipt Date: 20050429
  Transmission Date: 20060218
  Serious: Yes (Hospitalization)
  Sender: FDA-Public Use
  Company Number: FR-GLAXOSMITHKLINE-B0380047A

PATIENT
  Age: 46 Year
  Sex: Female

DRUGS (4)
  1. AUGMENTIN '125' [Suspect]
     Indication: SUPERINFECTION
     Dosage: 1G THREE TIMES PER DAY
     Route: 048
     Dates: start: 20050408, end: 20050412
  2. CIFLOX [Suspect]
     Indication: SUPERINFECTION
     Dosage: 500MG TWICE PER DAY
     Route: 048
     Dates: start: 20050408, end: 20050412
  3. ZENTEL [Concomitant]
     Dosage: 400MG TWICE PER DAY
     Route: 048
     Dates: start: 20050408
  4. TOPALGIC (FRANCE) [Concomitant]
     Route: 048

REACTIONS (5)
  - BLOOD BILIRUBIN UNCONJUGATED INCREASED [None]
  - BLOOD LACTATE DEHYDROGENASE INCREASED [None]
  - HAEMOGLOBIN DECREASED [None]
  - HAEMOLYSIS [None]
  - HAPTOGLOBIN DECREASED [None]
